FAERS Safety Report 6071504-3 (Version None)
Quarter: 2009Q1

REPORT INFORMATION
  Report Type: 
  Country: None (occurrence: None)
  Receive Date: 20090209
  Receipt Date: 20090209
  Transmission Date: 20090719
  Serious: Yes (Other)
  Sender: FDA-Public Use
  Company Number: None

PATIENT
  Sex: Male

DRUGS (2)
  1. ATENOLOL [Suspect]
     Indication: ATRIAL FIBRILLATION
     Dosage: 50 MG : 1/2 TAB 1 DAILY ORAL
     Route: 048
     Dates: start: 20050801, end: 20060501
  2. ATENOLOL [Suspect]
     Indication: HYPERTENSION
     Dosage: 50 MG : 1/2 TAB 1 DAILY ORAL
     Route: 048
     Dates: start: 20050801, end: 20060501

REACTIONS (3)
  - ARRHYTHMIA [None]
  - PALPITATIONS [None]
  - PRODUCT QUALITY ISSUE [None]
